FAERS Safety Report 7210811-5 (Version None)
Quarter: 2011Q1

REPORT INFORMATION
  Report Type: 
  Country: None (occurrence: None)
  Receive Date: 20110105
  Receipt Date: 20101229
  Transmission Date: 20110831
  Serious: Yes (Hospitalization)
  Sender: FDA-Public Use
  Company Number: AU-ELI_LILLY_AND_COMPANY-AU201012004195

PATIENT
  Sex: Female

DRUGS (11)
  1. GEMCITABINE HYDROCHLORIDE [Suspect]
     Indication: PANCREATIC CARCINOMA
     Dosage: 1000 MG/M2, UNKNOWN
     Route: 065
     Dates: start: 20101019
  2. FLUTICASONE W/SALMETEROL [Concomitant]
     Indication: ASTHMA
     Route: 055
     Dates: start: 20050101
  3. CETIRIZINE HYDROCHLORIDE [Concomitant]
     Indication: PROPHYLAXIS
     Route: 048
     Dates: start: 20101020
  4. DEXAMETHASONE [Concomitant]
     Indication: PROPHYLAXIS
     Route: 048
     Dates: start: 20101019
  5. METOCLOPRAMIDE [Concomitant]
     Indication: NAUSEA
     Route: 048
     Dates: start: 20101019
  6. ACETAMINOPHEN AND CODEINE PHOSPHATE [Concomitant]
     Indication: ABDOMINAL PAIN LOWER
     Route: 048
     Dates: start: 20101001
  7. PARACETAMOL [Concomitant]
     Indication: PROPHYLAXIS
     Route: 048
     Dates: start: 20101019
  8. DEXCHLORPHENIRAMINE MALEATE [Concomitant]
     Indication: PROPHYLAXIS
     Route: 048
     Dates: start: 20101020
  9. CEPHALEXIN [Concomitant]
     Indication: CELLULITIS
     Route: 048
     Dates: start: 20101120, end: 20101125
  10. ESOMEPRAZOL                        /01479301/ [Concomitant]
     Indication: GASTROOESOPHAGEAL REFLUX DISEASE
     Route: 048
     Dates: start: 20100501
  11. CLOTRIMAZOLE [Concomitant]
     Indication: VULVOVAGINAL CANDIDIASIS
     Route: 061
     Dates: start: 20101202, end: 20101206

REACTIONS (1)
  - LOWER RESPIRATORY TRACT INFECTION [None]
